FAERS Safety Report 18137026 (Version 4)
Quarter: 2021Q2

REPORT INFORMATION
  Report Type: Report from Study
  Country: None (occurrence: US)
  Receive Date: 20200812
  Receipt Date: 20210409
  Transmission Date: 20210717
  Serious: Yes (Other)
  Sender: FDA-Public Use
  Company Number: US-ABBVIE-20K-163-3372698-00

PATIENT
  Sex: Female
  Weight: 70.37 kg

DRUGS (1)
  1. HUMIRA [Suspect]
     Active Substance: ADALIMUMAB
     Indication: CROHN^S DISEASE
     Dosage: CITRATE FREE
     Route: 058
     Dates: start: 2016

REACTIONS (5)
  - Abdominal pain lower [Recovered/Resolved]
  - Discomfort [Unknown]
  - Impaired healing [Unknown]
  - Gastrointestinal fistula [Unknown]
  - Fistula discharge [Unknown]
